FAERS Safety Report 6127441-9 (Version None)
Quarter: 2009Q1

REPORT INFORMATION
  Report Type: 
  Country: None (occurrence: None)
  Receive Date: 20090323
  Receipt Date: 20090313
  Transmission Date: 20090719
  Serious: Yes (Hospitalization, Other)
  Sender: FDA-Public Use
  Company Number: CA-JNJFOC-20090206798

PATIENT
  Sex: Male
  Weight: 66.23 kg

DRUGS (6)
  1. REMINYL ER [Suspect]
     Indication: DEMENTIA
     Route: 048
  2. LANSOPRAZOLE [Concomitant]
     Indication: PROPHYLAXIS
     Route: 048
  3. SINEMET 100-125 [Concomitant]
     Indication: PARKINSON'S DISEASE
     Route: 048
  4. ADVAIR HFA [Concomitant]
     Indication: ASTHMA
  5. BETAXOLOL [Concomitant]
     Indication: GLAUCOMA
  6. FERROUS GLUCONATE [Concomitant]
     Indication: ANAEMIA
     Route: 048

REACTIONS (3)
  - BLOOD CREATININE INCREASED [None]
  - NAUSEA [None]
  - RENAL FAILURE ACUTE [None]
